FAERS Safety Report 17839516 (Version 1)
Quarter: 2020Q2

REPORT INFORMATION
  Report Type: Spontaneous
  Country: US (occurrence: US)
  Receive Date: 20200529
  Receipt Date: 20200529
  Transmission Date: 20200714
  Serious: No
  Sender: FDA-Public Use
  Company Number: US-ACCORD-130856

PATIENT
  Sex: Female

DRUGS (2)
  1. SYNTHROID [Concomitant]
     Active Substance: LEVOTHYROXINE SODIUM
  2. CLONAZEPAM ACCORD [Suspect]
     Active Substance: CLONAZEPAM
     Indication: PANIC DISORDER
     Dosage: TID
     Route: 048

REACTIONS (4)
  - Drug ineffective [Unknown]
  - Agitation [Not Recovered/Not Resolved]
  - Product substitution issue [Unknown]
  - Panic attack [Not Recovered/Not Resolved]
